FAERS Safety Report 22251145 (Version 1)
Quarter: 2023Q2

REPORT INFORMATION
  Report Type: Spontaneous
  Country: US (occurrence: US)
  Receive Date: 20230425
  Receipt Date: 20230425
  Transmission Date: 20230722
  Serious: Yes (Disabling)
  Sender: FDA-Public Use
  Company Number: US-SPECGX-T202300998

PATIENT

DRUGS (1)
  1. OXYCODONE [Suspect]
     Active Substance: OXYCODONE
     Indication: Pain
     Dosage: UNK
     Route: 065

REACTIONS (5)
  - Disability [Recovering/Resolving]
  - Gait inability [Recovering/Resolving]
  - Bedridden [Recovering/Resolving]
  - Economic problem [Unknown]
  - Drug ineffective [Unknown]
